FAERS Safety Report 13395991 (Version 1)
Quarter: 2017Q2

REPORT INFORMATION
  Report Type: Spontaneous
  Country: ES (occurrence: ES)
  Receive Date: 20170403
  Receipt Date: 20170403
  Transmission Date: 20170830
  Serious: Yes (Other)
  Sender: FDA-Public Use
  Company Number: ES-GLAXOSMITHKLINE-ES2017043099

PATIENT
  Age: 62 Year
  Sex: Female

DRUGS (15)
  1. OMEPRAZOL [Interacting]
     Active Substance: OMEPRAZOLE
     Indication: HIATUS HERNIA
     Dosage: UNK, BID, EVERY 12 HRS
     Route: 048
  2. JOINT CARE (CHONDROITIN SULFATE + GLUCOSAMINE + VITAMINS + MINERALS) [Concomitant]
     Dosage: UNK
     Route: 048
  3. ZONEGRAN [Interacting]
     Active Substance: ZONISAMIDE
     Indication: BRAIN LOBECTOMY
     Dosage: 100 MG/8 H.+ 75 AT NIGHT
     Route: 048
  4. SIMVASTATIN. [Interacting]
     Active Substance: SIMVASTATIN
     Indication: PRODUCT USED FOR UNKNOWN INDICATION
     Dosage: UNK
     Route: 048
  5. BROMAZEPAM [Concomitant]
     Active Substance: BROMAZEPAM
     Indication: BRAIN LOBECTOMY
     Dosage: UNK
     Route: 048
  6. EUTHYROX [Concomitant]
     Active Substance: LEVOTHYROXINE SODIUM
     Indication: THYROID DISORDER
     Dosage: UNK
     Route: 048
  7. IBUPROFEN. [Concomitant]
     Active Substance: IBUPROFEN
     Dosage: 600 MG, TID
     Route: 048
  8. METAMIZOL [Concomitant]
     Active Substance: METAMIZOLE SODIUM
     Dosage: UNK
     Route: 016
  9. OLMESARTAN MEDOXOMIL. [Interacting]
     Active Substance: OLMESARTAN MEDOXOMIL
     Indication: HYPERTENSION
     Dosage: UNK
     Route: 048
  10. PLURALAIS [Interacting]
     Active Substance: MONTELUKAST SODIUM
     Indication: ASTHMA
     Dosage: UNK
     Route: 048
  11. ALENDRONIC ACID [Concomitant]
     Active Substance: ALENDRONIC ACID
     Dosage: UNK
     Route: 048
  12. RELVAR ELLIPTA [Suspect]
     Active Substance: FLUTICASONE FUROATE\VILANTEROL TRIFENATATE
     Indication: ASTHMA
     Dosage: UNK
     Route: 055
     Dates: start: 2011, end: 2017
  13. ZIVEREL [Concomitant]
     Dosage: UNK
     Route: 048
  14. ESCITALOPRAM [Concomitant]
     Active Substance: ESCITALOPRAM OXALATE
     Dosage: UNK
     Route: 048
  15. ZALDIAR [Concomitant]
     Active Substance: ACETAMINOPHEN\TRAMADOL HYDROCHLORIDE
     Dosage: UNK
     Route: 048

REACTIONS (6)
  - Drug interaction [Unknown]
  - Pain [Recovering/Resolving]
  - Fibromyalgia [Unknown]
  - Spinal fracture [Recovered/Resolved]
  - Dysphonia [Not Recovered/Not Resolved]
  - Dental caries [Recovered/Resolved]

NARRATIVE: CASE EVENT DATE: 2016
